FAERS Safety Report 8832847 (Version 1)
Quarter: 2012Q4

REPORT INFORMATION
  Report Type: 
  Country: US (occurrence: None)
  Receive Date: 20121009
  Receipt Date: 20121009
  Transmission Date: 20130627
  Serious: Yes (Hospitalization)
  Sender: FDA-Public Use
  Company Number: None

PATIENT
  Sex: Female
  Weight: 47.1 kg

DRUGS (3)
  1. PACLITAXEL (TAXOL) [Suspect]
     Dates: end: 20120927
  2. BEVACIZUMAB [Suspect]
     Dates: end: 20120927
  3. CARBOPLATIN [Suspect]
     Dates: end: 20120927

REACTIONS (5)
  - Fall [None]
  - Asthenia [None]
  - Hypophagia [None]
  - Fluid intake reduced [None]
  - Ataxia [None]
